FAERS Safety Report 16074118 (Version 2)
Quarter: 2019Q1

REPORT INFORMATION
  Report Type: Spontaneous
  Country: JP (occurrence: JP)
  Receive Date: 20190314
  Receipt Date: 20190319
  Transmission Date: 20190418
  Serious: Yes (Death, Hospitalization, Other)
  Sender: FDA-Public Use
  Company Number: JP-PFIZER INC-2019114250

PATIENT
  Age: 9 Decade
  Sex: Male

DRUGS (7)
  1. DAIPHEN [Concomitant]
     Active Substance: SULFAMETHOXAZOLE\TRIMETHOPRIM
     Dosage: UNK
  2. LANSOPRAZOLE. [Concomitant]
     Active Substance: LANSOPRAZOLE
     Dosage: UNK
  3. XALKORI [Suspect]
     Active Substance: CRIZOTINIB
     Indication: NON-SMALL CELL LUNG CANCER
     Dosage: UNK
     Route: 048
     Dates: start: 20171130
  4. SPIRONOLACTONE. [Concomitant]
     Active Substance: SPIRONOLACTONE
     Dosage: UNK
  5. FUROSEMIDE. [Concomitant]
     Active Substance: FUROSEMIDE
     Dosage: UNK
  6. LIXIANA [Concomitant]
     Active Substance: EDOXABAN TOSYLATE
     Dosage: UNK
  7. ROZEREM [Concomitant]
     Active Substance: RAMELTEON
     Dosage: UNK

REACTIONS (14)
  - Seizure [Unknown]
  - Marasmus [Fatal]
  - Respiratory arrest [Unknown]
  - Blood pressure decreased [Unknown]
  - Cardiac arrest [Unknown]
  - Dementia [Unknown]
  - Irritability [Unknown]
  - Acidosis [Unknown]
  - Loss of consciousness [Fatal]
  - Physical deconditioning [Unknown]
  - Pyrexia [Unknown]
  - Mood swings [Unknown]
  - Urinary tract infection [Unknown]
  - Heart rate decreased [Fatal]

NARRATIVE: CASE EVENT DATE: 20181231
